FAERS Safety Report 5888695-7 (Version None)
Quarter: 2008Q3

REPORT INFORMATION
  Report Type: 
  Country: None (occurrence: None)
  Receive Date: 20080917
  Receipt Date: 20080730
  Transmission Date: 20090109
  Serious: Yes (Hospitalization)
  Sender: FDA-Public Use
  Company Number: 000629

PATIENT
  Age: 55 Year
  Sex: Female

DRUGS (5)
  1. BUSULFEX [Suspect]
     Indication: STEM CELL TRANSPLANT
     Dosage: 10.6 ML
     Route: 042
     Dates: start: 20061011, end: 20061015
  2. FLUDARABINE PHOSPHATE [Suspect]
     Indication: DRUG USE FOR UNKNOWN INDICATION
     Dosage: 39 MG, DAILY DOSE
     Route: 042
     Dates: start: 20061011, end: 20061016
  3. VALPROATE SODIUM [Concomitant]
  4. FILGRASTIM (FILGRASTIM) [Concomitant]
  5. CYCLOSPORINE [Concomitant]

REACTIONS (21)
  - ACUTE GRAFT VERSUS HOST DISEASE [None]
  - ANOREXIA [None]
  - ARTHRITIS BACTERIAL [None]
  - BONE MARROW TRANSPLANT REJECTION [None]
  - CARDIAC FAILURE [None]
  - CHRONIC GRAFT VERSUS HOST DISEASE [None]
  - CONVULSION [None]
  - CORD BLOOD TRANSPLANT THERAPY [None]
  - CYTOMEGALOVIRUS VIRAEMIA [None]
  - DIARRHOEA [None]
  - FEBRILE NEUTROPENIA [None]
  - HYPONATRAEMIA [None]
  - LIP PAIN [None]
  - LIP SWELLING [None]
  - MALAISE [None]
  - NAUSEA [None]
  - OROPHARYNGEAL PAIN [None]
  - PHARYNGITIS [None]
  - PLEURAL EFFUSION [None]
  - STAPHYLOCOCCAL SEPSIS [None]
  - STOMATITIS [None]
